FAERS Safety Report 8313023-7 (Version None)
Quarter: 2012Q2

REPORT INFORMATION
  Report Type: 
  Country: None (occurrence: None)
  Receive Date: 20120426
  Receipt Date: 20120417
  Transmission Date: 20120825
  Serious: Yes (Hospitalization)
  Sender: FDA-Public Use
  Company Number: DE-JNJFOC-20120313794

PATIENT
  Age: 32 Year
  Sex: Female
  Weight: 64 kg

DRUGS (4)
  1. SIMPONI [Suspect]
     Route: 058
     Dates: start: 20111001
  2. SIMPONI [Suspect]
     Indication: ANKYLOSING SPONDYLITIS
     Route: 058
     Dates: start: 20100805
  3. SIMPONI [Suspect]
     Route: 058
     Dates: start: 20120301
  4. VOLTAREN [Concomitant]
     Indication: ANKYLOSING SPONDYLITIS
     Route: 048
     Dates: start: 20120312

REACTIONS (2)
  - ECZEMA [None]
  - FOLLICULITIS [None]
